FAERS Safety Report 7286215-6 (Version None)
Quarter: 2011Q1

REPORT INFORMATION
  Report Type: 
  Country: None (occurrence: None)
  Receive Date: 20110210
  Receipt Date: 20110201
  Transmission Date: 20110831
  Serious: Yes (Hospitalization, Other)
  Sender: FDA-Public Use
  Company Number: PHHY2010US46893

PATIENT
  Sex: Female

DRUGS (4)
  1. RAPAMUNE [Concomitant]
     Dosage: 11 MG PER DAY
  2. ACTOS [Suspect]
  3. MYFORTIC [Suspect]
     Indication: RENAL TRANSPLANT
     Dosage: 360 MG, BID
     Route: 048
     Dates: start: 20091007
  4. MYFORTIC [Suspect]
     Dosage: 540 MG, BID
     Route: 048
     Dates: start: 20100607

REACTIONS (4)
  - PLATELET DISORDER [None]
  - HAEMOGLOBIN DECREASED [None]
  - KIDNEY TRANSPLANT REJECTION [None]
  - BLOOD CREATININE INCREASED [None]
